FAERS Safety Report 8060540-3 (Version None)
Quarter: 2012Q1

REPORT INFORMATION
  Report Type: 
  Country: None (occurrence: None)
  Receive Date: 20120120
  Receipt Date: 20120117
  Transmission Date: 20120608
  Serious: Yes (Death)
  Sender: FDA-Public Use
  Company Number: US-CELGENEUS-163-21880-12011724

PATIENT
  Sex: Male

DRUGS (15)
  1. REVLIMID [Suspect]
     Dosage: 15 MILLIGRAM
     Route: 048
     Dates: start: 20101027
  2. BACTRIM DS [Concomitant]
     Route: 065
  3. ATIVAN [Concomitant]
     Route: 065
  4. VITAMIN D [Concomitant]
     Route: 065
  5. MULTI-VITAMINS [Concomitant]
     Route: 065
  6. CALCIUM [Concomitant]
     Route: 065
  7. OMEPRAZOLE [Concomitant]
     Route: 065
  8. REVLIMID [Suspect]
     Dosage: 10 MILLIGRAM
     Route: 048
     Dates: start: 20101001
  9. ONDANSETRON HCL [Concomitant]
     Route: 065
  10. ACYCLOVIR [Concomitant]
     Route: 065
  11. REVLIMID [Suspect]
     Indication: MULTIPLE MYELOMA
     Dosage: 25 MILLIGRAM
     Route: 048
     Dates: start: 20090801
  12. BETHANECHOL [Concomitant]
     Route: 065
  13. SERTRALINE HYDROCHLORIDE [Concomitant]
     Route: 065
  14. VELCADE [Concomitant]
     Route: 065
  15. DEXAMETHASONE TAB [Concomitant]
     Route: 065

REACTIONS (6)
  - DEATH [None]
  - COUGH [None]
  - ILL-DEFINED DISORDER [None]
  - PAIN [None]
  - VISION BLURRED [None]
  - FATIGUE [None]
